FAERS Safety Report 23231538 (Version 1)
Quarter: 2023Q4

REPORT INFORMATION
  Report Type: Spontaneous
  Country: US (occurrence: None)
  Receive Date: 20231124
  Receipt Date: 20231124
  Transmission Date: 20240110
  Serious: Yes (Hospitalization)
  Sender: FDA-Public Use
  Company Number: None

PATIENT
  Age: 47 Year
  Sex: Male
  Weight: 94.8 kg

DRUGS (6)
  1. FARXIGA [Suspect]
     Active Substance: DAPAGLIFLOZIN PROPANEDIOL
     Indication: Diabetes mellitus
     Dosage: FREQUENCY : DAILY;?
     Route: 048
     Dates: end: 20231123
  2. diltiazem ER 120mg caps PO BID [Concomitant]
  3. Escitalopram 10mg PO daily [Concomitant]
  4. Levemir flexpen SQ 30 units QAM and 20 units SQ QPM [Concomitant]
  5. lorazepam 1mg PO TID [Concomitant]
  6. Rivaroxaban 20mg daily [Concomitant]

REACTIONS (5)
  - Pancreatitis acute [None]
  - Hepatic steatosis [None]
  - Metabolic acidosis [None]
  - Blood glucose increased [None]
  - Euglycaemic diabetic ketoacidosis [None]

NARRATIVE: CASE EVENT DATE: 20231123
